FAERS Safety Report 7971940 (Version 3)
Quarter: 2012Q4

REPORT INFORMATION
  Report Type: Report from Study
  Country: JP (occurrence: JP)
  Receive Date: 20110602
  Receipt Date: 20121029
  Transmission Date: 20130627
  Serious: Yes (Death, Life-Threatening, Hospitalization, Other)
  Sender: FDA-Public Use
  Company Number: JP-CELGENEUS-087-21880-11030470

PATIENT
  Age: 73 Year
  Sex: Female

DRUGS (17)
  1. REVLIMID [Suspect]
     Indication: MULTIPLE MYELOMA
     Dosage: 10 Milligram
     Route: 048
     Dates: start: 20110118, end: 20110131
  2. REVLIMID [Suspect]
     Dosage: 5 Milligram
     Route: 048
     Dates: start: 20110210, end: 20110302
  3. LENADEX [Suspect]
     Indication: MULTIPLE MYELOMA
     Dosage: 20 Milligram
     Route: 048
     Dates: start: 20110119, end: 20110126
  4. LENADEX [Suspect]
     Dosage: 20 Milligram
     Route: 048
     Dates: start: 20110211, end: 20110225
  5. DUROTEP [Concomitant]
     Indication: MULTIPLE MYELOMA
     Route: 062
     Dates: start: 20110210, end: 20110302
  6. ALOSITOL [Concomitant]
     Indication: MULTIPLE MYELOMA
     Dosage: 100 Milligram
     Route: 048
     Dates: start: 20110210, end: 20110302
  7. BAKTAR [Concomitant]
     Indication: PROPHYLAXIS
     Dosage: 1 Gram
     Route: 048
     Dates: start: 20110118, end: 20110302
  8. FAMOTIDINE D [Concomitant]
     Indication: PROPHYLAXIS
     Dosage: 2 Tablet
     Route: 048
     Dates: start: 20110118, end: 20110302
  9. LENDEM D [Concomitant]
     Indication: INSOMNIA
     Dosage: 1 Tablet
     Route: 048
     Dates: start: 20110118, end: 20110302
  10. PANTOSIN [Concomitant]
     Indication: PROPHYLAXIS
     Dosage: 3 Tablet
     Route: 048
     Dates: start: 20110210, end: 20110302
  11. AMLODIPINE [Concomitant]
     Indication: HYPERTENSION
     Dosage: 1 Tablet
     Route: 048
     Dates: start: 20110118, end: 20110302
  12. RENIVACE [Concomitant]
     Indication: HYPERTENSION
     Dosage: 1 Tablet
     Route: 048
     Dates: start: 20110118, end: 20110302
  13. SENNOSIDE [Concomitant]
     Indication: PROPHYLAXIS
     Dosage: 2 Tablet
     Route: 048
     Dates: start: 20110210, end: 20110302
  14. VOGLIBOSE [Concomitant]
     Indication: DIABETES MELLITUS
     Dosage: 9 Tablet
     Route: 048
     Dates: start: 20110118
  15. KALIMATE [Concomitant]
     Indication: MULTIPLE MYELOMA
     Dosage: 3 packs
     Route: 048
     Dates: start: 20110118
  16. GLUCOSE [Concomitant]
     Indication: DRUG USE FOR UNKNOWN INDICATION
     Dosage: 1 pack
     Route: 048
     Dates: start: 20110118
  17. NOVOLIN R [Concomitant]
     Indication: DIABETES MELLITUS
     Route: 058
     Dates: start: 20110118

REACTIONS (7)
  - Death [Fatal]
  - Renal failure [Recovering/Resolving]
  - Sepsis [Recovering/Resolving]
  - Dehydration [Recovered/Resolved]
  - Neutrophil count decreased [Recovering/Resolving]
  - Platelet count decreased [Not Recovered/Not Resolved]
  - Neutrophil count decreased [Recovering/Resolving]
